FAERS Safety Report 9374048 (Version 2)
Quarter: 2013Q3

REPORT INFORMATION
  Report Type: Spontaneous
  Country: US (occurrence: US)
  Receive Date: 20130628
  Receipt Date: 20130821
  Transmission Date: 20140515
  Serious: Yes (Hospitalization)
  Sender: FDA-Public Use
  Company Number: US-009507513-1306USA011552

PATIENT
  Sex: 0

DRUGS (1)
  1. DULERA [Suspect]
     Route: 055

REACTIONS (2)
  - Thymoma [Unknown]
  - Wrong technique in drug usage process [Unknown]
